FAERS Safety Report 8478333-1 (Version None)
Quarter: 2012Q2

REPORT INFORMATION
  Report Type: 
  Country: None (occurrence: None)
  Receive Date: 20120629
  Receipt Date: 20120627
  Transmission Date: 20120825
  Serious: Yes (Life-Threatening, Hospitalization)
  Sender: FDA-Public Use
  Company Number: FR-PFIZER INC-FRWYE580613FEB04

PATIENT
  Age: 18 Year
  Sex: Female

DRUGS (8)
  1. GESTODENE AND ETHINYL ESTRADIOL [Suspect]
     Dosage: 1.0 DF, 1X/DAY
     Route: 048
     Dates: start: 20040120
  2. ULTRA-LEVURE [Concomitant]
     Indication: ABDOMINAL PAIN
  3. GESTODENE AND ETHINYL ESTRADIOL [Suspect]
     Dosage: 1.0 DF, 1X/DAY
     Route: 048
     Dates: start: 20031122, end: 20040106
  4. DEBRIDAT [Suspect]
     Indication: ABDOMINAL PAIN
     Dosage: UNK
     Route: 048
     Dates: start: 20031218, end: 20040106
  5. BACTRIM DS [Suspect]
     Indication: BACTERIAL DIARRHOEA
     Dosage: UNK
     Route: 048
     Dates: start: 20031223, end: 20031230
  6. ULTRA-LEVURE [Concomitant]
     Indication: DIARRHOEA
  7. PRAXINOR [Suspect]
     Dosage: 2.0 DF, 1X/DAY
     Route: 048
     Dates: start: 20031027, end: 20040106
  8. IBUPROFEN [Suspect]
     Dosage: UNK
     Route: 048
     Dates: start: 20031122, end: 20040106

REACTIONS (4)
  - ASPARTATE AMINOTRANSFERASE INCREASED [None]
  - ALANINE AMINOTRANSFERASE INCREASED [None]
  - ENTEROCOLITIS [None]
  - DRUG-INDUCED LIVER INJURY [None]
